FAERS Safety Report 5329434-8 (Version None)
Quarter: 2007Q2

REPORT INFORMATION
  Report Type: 
  Country: None (occurrence: None)
  Receive Date: 20070221
  Receipt Date: 20060823
  Transmission Date: 20071010
  Serious: Yes (Other)
  Sender: FDA-Public Use
  Company Number: US-2006-024422

PATIENT
  Sex: Female

DRUGS (5)
  1. CLIMARA [Suspect]
  2. PREMPRO [Suspect]
  3. MEDROXYPROGESTERONE [Suspect]
  4. PROVERA [Suspect]
  5. PREMARIN [Suspect]

REACTIONS (1)
  - BREAST CANCER FEMALE [None]
